FAERS Safety Report 19987539 (Version 1)
Quarter: 2021Q4

REPORT INFORMATION
  Report Type: Spontaneous
  Country: CH (occurrence: CH)
  Receive Date: 20211022
  Receipt Date: 20211022
  Transmission Date: 20220303
  Serious: Yes (Other)
  Sender: FDA-Public Use
  Company Number: CH-PFIZER INC-202101356990

PATIENT
  Age: 85 Year
  Sex: Male

DRUGS (2)
  1. LORAZEPAM [Suspect]
     Active Substance: LORAZEPAM
     Dosage: 1 TAB MORNING + EVENING, THEN 1 AND A HALF MORNING AND EVENING AND NOW 2 TABLETS MORNING AND EVENING
  2. SERTRALINE HYDROCHLORIDE [Suspect]
     Active Substance: SERTRALINE HYDROCHLORIDE
     Indication: Depression
     Dosage: UNK

REACTIONS (9)
  - Loss of consciousness [Unknown]
  - Product use issue [Unknown]
  - Vision blurred [Unknown]
  - Pain in extremity [Unknown]
  - Sleep disorder [Unknown]
  - Irritable bowel syndrome [Unknown]
  - Amnesia [Unknown]
  - Vertigo [Unknown]
  - Agnosia [Unknown]
